FAERS Safety Report 5251508-0 (Version None)
Quarter: 2007Q1

REPORT INFORMATION
  Report Type: 
  Country: None (occurrence: None)
  Receive Date: 20070228
  Receipt Date: 20060731
  Transmission Date: 20070707
  Serious: No
  Sender: FDA-Public Use
  Company Number: US-GLAXOSMITHKLINE-A0606343A

PATIENT
  Age: 39 Year
  Sex: Female
  Weight: 54.5 kg

DRUGS (5)
  1. LAMICTAL [Suspect]
     Indication: BIPOLAR DISORDER
     Dosage: 100MG TWICE PER DAY
     Route: 048
     Dates: start: 20060118, end: 20060517
  2. LUNESTA [Concomitant]
     Indication: INSOMNIA
     Dosage: 3MG AT NIGHT
     Route: 048
     Dates: start: 20060118, end: 20060218
  3. DEPAKOTE ER [Concomitant]
     Dates: start: 20051205, end: 20060210
  4. KLONOPIN [Concomitant]
     Dosage: 1MG THREE TIMES PER DAY
     Route: 048
     Dates: start: 20060118, end: 20060302
  5. ZYPREXA [Concomitant]
     Dosage: 5MG AT NIGHT
     Route: 048
     Dates: start: 20060118, end: 20060205

REACTIONS (1)
  - ALOPECIA [None]
